FAERS Safety Report 25176242 (Version 1)
Quarter: 2025Q2

REPORT INFORMATION
  Report Type: Spontaneous
  Country: US (occurrence: US)
  Receive Date: 20250409
  Receipt Date: 20250409
  Transmission Date: 20250716
  Serious: No
  Sender: SPECGX
  Company Number: US-SPECGX-T202400746

PATIENT

DRUGS (1)
  1. RESTORIL [Suspect]
     Active Substance: TEMAZEPAM
     Indication: Product used for unknown indication
     Route: 065

REACTIONS (2)
  - Product physical issue [Unknown]
  - Drug ineffective [Unknown]
